FAERS Safety Report 7962500-7 (Version None)
Quarter: 2011Q4

REPORT INFORMATION
  Report Type: 
  Country: None (occurrence: None)
  Receive Date: 20111207
  Receipt Date: 20111201
  Transmission Date: 20120403
  Serious: Yes (Other)
  Sender: FDA-Public Use
  Company Number: US-GLAXOSMITHKLINE-A0944463A

PATIENT
  Age: 97 Year
  Sex: Female

DRUGS (6)
  1. SPIRONOLACTONE [Concomitant]
  2. CHOLESTYRAMINE [Concomitant]
  3. VITAMIN D [Concomitant]
  4. ASPIRIN [Concomitant]
  5. LOVAZA [Suspect]
     Indication: BLOOD CHOLESTEROL INCREASED
     Dosage: 2CAP TWICE PER DAY
     Route: 048
     Dates: start: 20100101, end: 20110830
  6. LIVALO [Concomitant]

REACTIONS (2)
  - MACULAR DEGENERATION [None]
  - BLINDNESS [None]
